FAERS Safety Report 22399917 (Version 1)
Quarter: 2023Q2

REPORT INFORMATION
  Report Type: Other
  Country: None (occurrence: IE)
  Receive Date: 20230602
  Receipt Date: 20230602
  Transmission Date: 20230721
  Serious: Yes (Hospitalization)
  Sender: FDA-Public Use
  Company Number: IE-B.Braun Medical Inc.-2142288

PATIENT
  Age: 1 Month
  Sex: Male

DRUGS (2)
  1. MEROPENEM\SODIUM CHLORIDE [Suspect]
     Active Substance: MEROPENEM\SODIUM CHLORIDE
     Indication: Infection
  2. CEFTRIAXONE [Suspect]
     Active Substance: CEFTRIAXONE

REACTIONS (3)
  - Off label use [Recovering/Resolving]
  - Hypertriglyceridaemia [Recovering/Resolving]
  - Serum ferritin increased [Recovering/Resolving]
